FAERS Safety Report 5535224-3 (Version None)
Quarter: 2007Q4

REPORT INFORMATION
  Report Type: 
  Country: None (occurrence: None)
  Receive Date: 20071206
  Receipt Date: 20071126
  Transmission Date: 20080405
  Serious: Yes (Other)
  Sender: FDA-Public Use
  Company Number: JP-BRISTOL-MYERS SQUIBB COMPANY-14001564

PATIENT
  Age: 43 Year
  Sex: Male

DRUGS (3)
  1. CYCLOPHOSPHAMIDE [Suspect]
     Indication: LYMPHOMA
  2. CARBOPLATIN [Suspect]
     Indication: LYMPHOMA
  3. ETOPOSIDE [Suspect]
     Indication: LYMPHOMA

REACTIONS (1)
  - ARRHYTHMIA [None]
